FAERS Safety Report 20208665 (Version 1)
Quarter: 2021Q4

REPORT INFORMATION
  Report Type: Spontaneous
  Country: US (occurrence: None)
  Receive Date: 20211220
  Receipt Date: 20211220
  Transmission Date: 20220303
  Serious: Yes (Hospitalization)
  Sender: FDA-Public Use
  Company Number: None

PATIENT
  Age: 23 Year
  Sex: Female
  Weight: 55.8 kg

DRUGS (1)
  1. FLUOXETINE [Suspect]
     Active Substance: FLUOXETINE HYDROCHLORIDE
     Indication: Anxiety
     Route: 048
     Dates: start: 20200823, end: 20200829

REACTIONS (7)
  - Suicidal ideation [None]
  - Anxiety [None]
  - Insomnia [None]
  - Hallucination, auditory [None]
  - Hallucination, visual [None]
  - Confusional state [None]
  - Paranoia [None]

NARRATIVE: CASE EVENT DATE: 20200830
